FAERS Safety Report 5684655-X (Version None)
Quarter: 2008Q1

REPORT INFORMATION
  Report Type: 
  Country: None (occurrence: None)
  Receive Date: 20080328
  Receipt Date: 20070530
  Transmission Date: 20080703
  Serious: Yes (Life-Threatening)
  Sender: FDA-Public Use
  Company Number: US-BRISTOL-MYERS SQUIBB COMPANY-13767991

PATIENT
  Age: 71 Year
  Sex: Female
  Weight: 48 kg

DRUGS (14)
  1. ERBITUX [Suspect]
     Indication: NEOPLASM MALIGNANT
     Route: 042
     Dates: start: 20070307, end: 20070502
  2. ZANTAC [Concomitant]
     Indication: PREMEDICATION
  3. BENADRYL [Concomitant]
     Indication: PREMEDICATION
  4. TYLENOL (CAPLET) [Concomitant]
  5. MAGNESIUM SULFATE [Concomitant]
  6. DETROL LA [Concomitant]
  7. ALPRAZOLAM [Concomitant]
  8. OXYCODONE HCL [Concomitant]
  9. DURAGESIC-100 [Concomitant]
  10. METROGEL [Concomitant]
  11. MIRALAX [Concomitant]
  12. VALIUM [Concomitant]
  13. LEVOTHYROXINE SODIUM [Concomitant]
  14. CALCIUM GLUCONATE [Concomitant]

REACTIONS (2)
  - COUGH [None]
  - DYSPNOEA [None]
